FAERS Safety Report 4964257-0 (Version None)
Quarter: 2006Q1

REPORT INFORMATION
  Report Type: 
  Country: None (occurrence: None)
  Receive Date: 20060331
  Receipt Date: 20060317
  Transmission Date: 20060701
  Serious: Yes (Life-Threatening, Hospitalization)
  Sender: FDA-Public Use
  Company Number: DE200603004990

PATIENT
  Age: 36 Year
  Sex: Male

DRUGS (3)
  1. CYMBALTA [Suspect]
     Indication: DEPRESSION
     Dosage: 60 MG, ORAL
     Route: 048
     Dates: start: 20060303, end: 20060307
  2. DIPIPERON (PIPAMPERONE) [Concomitant]
  3. ATOSIL (ISOPROMETHAZINE HYDROCHLORIDE) [Concomitant]

REACTIONS (3)
  - SYNCOPE [None]
  - TACHYCARDIA [None]
  - VENTRICULAR FIBRILLATION [None]
